FAERS Safety Report 8351717 (Version 3)
Quarter: 2014Q4

REPORT INFORMATION
  Report Type: Spontaneous
  Country: US (occurrence: US)
  Receive Date: 20120124
  Receipt Date: 20141030
  Transmission Date: 20150529
  Serious: Yes (Hospitalization, Other)
  Sender: FDA-Public Use
  Company Number: US-GLAXOSMITHKLINE-A0962549A

PATIENT
  Age: 70 Year
  Sex: Female

DRUGS (1)
  1. AVANDIA [Suspect]
     Active Substance: ROSIGLITAZONE MALEATE
     Indication: DIABETES MELLITUS
     Route: 048
     Dates: start: 200404, end: 2007

REACTIONS (12)
  - Mitral valve stenosis [Unknown]
  - Coronary artery disease [Unknown]
  - Mitral valve repair [Unknown]
  - Coronary artery bypass [Unknown]
  - Atrial fibrillation [Unknown]
  - Pulmonary oedema [Unknown]
  - Cardiac failure congestive [Unknown]
  - Cardiomyopathy [Unknown]
  - Arrhythmia [Unknown]
  - Myocardial infarction [Not Recovered/Not Resolved]
  - Heart valve incompetence [Unknown]
  - Atrial flutter [Unknown]

NARRATIVE: CASE EVENT DATE: 200404
